FAERS Safety Report 8180325-7 (Version None)
Quarter: 2012Q1

REPORT INFORMATION
  Report Type: 
  Country: None (occurrence: None)
  Receive Date: 20120302
  Receipt Date: 20120217
  Transmission Date: 20120608
  Serious: Yes (Hospitalization)
  Sender: FDA-Public Use
  Company Number: ES-MYLANLABS-2012S1004002

PATIENT
  Age: 39 Year
  Sex: Male

DRUGS (8)
  1. HYDROCHLOROTHIAZIDE [Concomitant]
     Dosage: 25 MG/DAY
     Route: 065
  2. LOSARTAN POTASSIUM [Concomitant]
     Dosage: 50 MG/DAY
     Route: 065
  3. SIMVASTATIN [Concomitant]
     Dosage: 20 MG/DAY
     Route: 065
  4. OMEPRAZOLE [Suspect]
     Dosage: 40 MG/DAY
     Route: 065
  5. ASPIRIN [Concomitant]
     Dosage: 100 MG/DAY
     Route: 065
  6. ATENOLOL [Concomitant]
     Dosage: 25 MG/DAY
     Route: 065
  7. AMLODIPINE [Concomitant]
     Dosage: 5 MG/DAY
     Route: 065
  8. ACENOCOUMAROL [Concomitant]
     Dosage: 3 MG/DAY
     Route: 065

REACTIONS (4)
  - HYPOMAGNESAEMIA [None]
  - HYPOCALCAEMIA [None]
  - HYPOKALAEMIA [None]
  - HYPOPHOSPHATAEMIA [None]
